FAERS Safety Report 7115708-7 (Version None)
Quarter: 2010Q4

REPORT INFORMATION
  Report Type: 
  Country: None (occurrence: None)
  Receive Date: 20101122
  Receipt Date: 20101110
  Transmission Date: 20110411
  Serious: Yes (Hospitalization)
  Sender: FDA-Public Use
  Company Number: US-NOVOPROD-318383

PATIENT
  Age: 75 Year
  Sex: Female

DRUGS (2)
  1. NOVOLOG [Suspect]
     Indication: DIABETES MELLITUS
     Dosage: SUPPLEMENTAL SCALE
     Route: 058
  2. LANTUS [Concomitant]
     Indication: DIABETES MELLITUS

REACTIONS (2)
  - CELLULITIS [None]
  - EXPIRED DRUG ADMINISTERED [None]
